FAERS Safety Report 6606443-X (Version None)
Quarter: 2010Q1

REPORT INFORMATION
  Report Type: 
  Country: None (occurrence: None)
  Receive Date: 20100226
  Receipt Date: 20100215
  Transmission Date: 20100710
  Serious: Yes (Hospitalization, Disabling, Other)
  Sender: FDA-Public Use
  Company Number: PHEH2008US08146

PATIENT
  Sex: Female
  Weight: 74.83 kg

DRUGS (20)
  1. AREDIA [Suspect]
  2. ZOMETA [Suspect]
     Dosage: UNK
     Dates: start: 19970101
  3. TAMOXIFEN CITRATE [Concomitant]
  4. FASLODEX [Concomitant]
  5. TAXOTERE [Concomitant]
     Dosage: UNK
  6. RADIATION TREATMENT [Concomitant]
  7. ARIMIDEX [Concomitant]
  8. DECADRON [Concomitant]
     Dosage: 2 MG, UNK
  9. GEMFIBROZIL [Concomitant]
     Dosage: 600 MG, UNK
  10. AMOXICILLIN [Concomitant]
     Dosage: 250 MG, UNK
  11. CEFTIN [Concomitant]
     Dosage: 250 MG, UNK
  12. VANCOMYCIN [Concomitant]
  13. CHEMOTHERAPEUTICS NOS [Concomitant]
  14. NEXIUM [Concomitant]
  15. METOPROLOL TARTRATE [Concomitant]
  16. ZOFRAN [Concomitant]
  17. AMBIEN [Concomitant]
  18. ATROVENT [Suspect]
  19. ALBUTEROL [Concomitant]
  20. AROMASIN [Concomitant]

REACTIONS (48)
  - ABSCESS ORAL [None]
  - ANAEMIA [None]
  - ANXIETY [None]
  - AORTIC ARTERIOSCLEROSIS [None]
  - ASTHENIA [None]
  - ATRIAL FIBRILLATION [None]
  - BONE NEOPLASM MALIGNANT [None]
  - DECREASED INTEREST [None]
  - DEHYDRATION [None]
  - DIARRHOEA [None]
  - DISABILITY [None]
  - DIZZINESS [None]
  - DUODENITIS [None]
  - DYSPNOEA [None]
  - EAR PAIN [None]
  - ENDODONTIC PROCEDURE [None]
  - FALL [None]
  - GENERAL PHYSICAL HEALTH DETERIORATION [None]
  - HEART RATE IRREGULAR [None]
  - HIATUS HERNIA [None]
  - HYPERTENSION [None]
  - HYPOAESTHESIA FACIAL [None]
  - INJURY [None]
  - LUMBAR RADICULOPATHY [None]
  - MALIGNANT NEOPLASM PROGRESSION [None]
  - METASTASES TO LIVER [None]
  - MITRAL VALVE DISEASE [None]
  - MUSCULOSKELETAL CHEST PAIN [None]
  - MYELODYSPLASTIC SYNDROME [None]
  - MYELOPATHY [None]
  - NEUROPATHY PERIPHERAL [None]
  - OEDEMA PERIPHERAL [None]
  - OSTEOARTHRITIS [None]
  - OSTEONECROSIS [None]
  - PAIN [None]
  - REFLUX OESOPHAGITIS [None]
  - RENAL FAILURE CHRONIC [None]
  - RIB FRACTURE [None]
  - SEQUESTRECTOMY [None]
  - SINUS HEADACHE [None]
  - SINUSITIS [None]
  - SPINAL COLUMN STENOSIS [None]
  - TOOTH EXTRACTION [None]
  - TOOTHACHE [None]
  - TRANSIENT ISCHAEMIC ATTACK [None]
  - TRIGEMINAL NEURALGIA [None]
  - WALKING AID USER [None]
  - WEIGHT DECREASED [None]
